FAERS Safety Report 5267871-0 (Version None)
Quarter: 2007Q1

REPORT INFORMATION
  Report Type: 
  Country: None (occurrence: None)
  Receive Date: 20061213
  Receipt Date: 20041207
  Transmission Date: 20070707
  Serious: Yes (Other)
  Sender: FDA-Public Use
  Company Number: 2004UW25015

PATIENT
  Age: 68 Year
  Sex: Female
  Weight: 55.338 kg

DRUGS (9)
  1. IRESSA [Suspect]
     Indication: METASTASES TO BONE
     Dates: start: 20041101
  2. IRESSA [Suspect]
     Indication: METASTASES TO CENTRAL NERVOUS SYSTEM
     Dates: start: 20041101
  3. IRESSA [Suspect]
     Indication: NON-SMALL CELL LUNG CANCER
     Dates: start: 20041101
  4. IRESSA [Suspect]
     Indication: METASTASES TO BONE
     Dates: start: 20040701, end: 20041001
  5. IRESSA [Suspect]
     Indication: METASTASES TO CENTRAL NERVOUS SYSTEM
     Dates: start: 20040701, end: 20041001
  6. IRESSA [Suspect]
     Indication: NON-SMALL CELL LUNG CANCER
     Dates: start: 20040701, end: 20041001
  7. HUMIBID [Concomitant]
  8. MORPHINE [Concomitant]
  9. REMERON [Concomitant]

REACTIONS (4)
  - ANAEMIA [None]
  - ASTHENIA [None]
  - SOMNOLENCE [None]
  - VOMITING [None]
